FAERS Safety Report 15055262 (Version 1)
Quarter: 2018Q2

REPORT INFORMATION
  Report Type: Spontaneous
  Country: US (occurrence: US)
  Receive Date: 20180603
  Receipt Date: 20180603
  Transmission Date: 20180711
  Serious: No
  Sender: FDA-Public Use
  Company Number: None

PATIENT
  Age: 34 Year
  Sex: Female
  Weight: 67.59 kg

DRUGS (5)
  1. ERRIN [Suspect]
     Active Substance: NORETHINDRONE
     Indication: CONTRACEPTION
     Dosage: ?          QUANTITY:1 TABLET(S);?
     Route: 048
     Dates: start: 20180419, end: 20180524
  2. FLUTICASONE. [Concomitant]
     Active Substance: FLUTICASONE
  3. KYLEENA [Concomitant]
     Active Substance: LEVONORGESTREL
  4. MULTIVITAMIN [Concomitant]
     Active Substance: VITAMINS
  5. FEXOFENADINE [Concomitant]
     Active Substance: FEXOFENADINE\FEXOFENADINE HYDROCHLORIDE

REACTIONS (2)
  - Vaginal haemorrhage [None]
  - Suppressed lactation [None]

NARRATIVE: CASE EVENT DATE: 20180524
